FAERS Safety Report 6703168-7 (Version None)
Quarter: 2010Q2

REPORT INFORMATION
  Report Type: 
  Country: None (occurrence: None)
  Receive Date: 20100430
  Receipt Date: 20100421
  Transmission Date: 20101027
  Serious: No
  Sender: FDA-Public Use
  Company Number: US-BIOGENIDEC-2010BI013563

PATIENT
  Sex: Female

DRUGS (2)
  1. AVONEX [Suspect]
     Indication: MULTIPLE SCLEROSIS
     Route: 030
     Dates: start: 20060425, end: 20070312
  2. AVONEX [Suspect]
     Route: 030
     Dates: start: 20100331

REACTIONS (5)
  - ABDOMINAL DISCOMFORT [None]
  - CARDIAC DISORDER [None]
  - INFLUENZA [None]
  - INFLUENZA LIKE ILLNESS [None]
  - VOMITING [None]
